FAERS Safety Report 10263592 (Version 1)
Quarter: 2014Q2

REPORT INFORMATION
  Report Type: Report from Study
  Country: US (occurrence: US)
  Receive Date: 20140626
  Receipt Date: 20140626
  Transmission Date: 20141212
  Serious: Yes (Other)
  Sender: FDA-Public Use
  Company Number: PHEH2014US012718

PATIENT
  Age: 71 Year
  Sex: Female

DRUGS (8)
  1. TEKTURNA [Suspect]
     Dosage: 150 MG, DAILY
  2. TEKTURNA [Suspect]
     Dosage: 300 MG, DAILY
  3. CLONIDINE [Suspect]
     Dosage: UNK UKN, UNK
     Route: 062
  4. BYSTOLIC [Suspect]
     Dosage: UNK UKN, UNK
  5. PROTONIX [Concomitant]
     Dosage: UNK UKN, UNK
  6. MULTIVITAMIN//VITAMINS NOS [Concomitant]
     Dosage: UNK UKN, UNK
  7. CALCIUM [Concomitant]
     Dosage: UNK UKN, UNK
  8. VITAMIN B12 [Concomitant]
     Dosage: UNK UKN, UNK

REACTIONS (4)
  - Oesophageal carcinoma [Unknown]
  - Blood pressure fluctuation [Unknown]
  - Gastrooesophageal reflux disease [Unknown]
  - Anaemia [Unknown]
